FAERS Safety Report 14823235 (Version 4)
Quarter: 2019Q2

REPORT INFORMATION
  Report Type: Spontaneous
  Country: US (occurrence: US)
  Receive Date: 20180427
  Receipt Date: 20190412
  Transmission Date: 20190711
  Serious: Yes (Other)
  Sender: FDA-Public Use
  Company Number: US-ASTRAZENECA-2018SE49830

PATIENT
  Age: 24053 Day
  Sex: Male
  Weight: 76.7 kg

DRUGS (22)
  1. NEXIUM [Suspect]
     Active Substance: ESOMEPRAZOLE MAGNESIUM
     Indication: GASTROOESOPHAGEAL REFLUX DISEASE
     Route: 048
     Dates: start: 200306, end: 201605
  2. METOPROLOL. [Concomitant]
     Active Substance: METOPROLOL
  3. ACTONEL [Concomitant]
     Active Substance: RISEDRONATE SODIUM
  4. NEXIUM [Suspect]
     Active Substance: ESOMEPRAZOLE MAGNESIUM
     Indication: GASTROOESOPHAGEAL REFLUX DISEASE
     Route: 048
     Dates: start: 2003, end: 2016
  5. PREVACID [Suspect]
     Active Substance: LANSOPRAZOLE
     Indication: GASTROOESOPHAGEAL REFLUX DISEASE
     Route: 065
     Dates: start: 2003, end: 2016
  6. RAMIPRIL. [Concomitant]
     Active Substance: RAMIPRIL
  7. FOLIC ACID. [Concomitant]
     Active Substance: FOLIC ACID
  8. TOPROL XL [Concomitant]
     Active Substance: METOPROLOL SUCCINATE
  9. PREDNISONE. [Concomitant]
     Active Substance: PREDNISONE
  10. VIAGRA [Concomitant]
     Active Substance: SILDENAFIL CITRATE
  11. VIAGRA [Concomitant]
     Active Substance: SILDENAFIL CITRATE
  12. ALTACE [Concomitant]
     Active Substance: RAMIPRIL
  13. HUMIRA [Concomitant]
     Active Substance: ADALIMUMAB
  14. PLAVIX [Concomitant]
     Active Substance: CLOPIDOGREL BISULFATE
  15. NEXIUM 24HR [Suspect]
     Active Substance: ESOMEPRAZOLE MAGNESIUM
     Route: 048
     Dates: start: 200306, end: 201605
  16. NITROGLYCERIN. [Concomitant]
     Active Substance: NITROGLYCERIN
  17. METHOTREXATE. [Concomitant]
     Active Substance: METHOTREXATE
  18. RAMIPRIL. [Concomitant]
     Active Substance: RAMIPRIL
  19. LIDODERM [Concomitant]
     Active Substance: LIDOCAINE
  20. ARAVA [Concomitant]
     Active Substance: LEFLUNOMIDE
  21. FOSAMAX [Concomitant]
     Active Substance: ALENDRONATE SODIUM
  22. METOCLOPRAMIDE. [Concomitant]
     Active Substance: METOCLOPRAMIDE

REACTIONS (4)
  - Hyperparathyroidism secondary [Unknown]
  - Chronic kidney disease [Not Recovered/Not Resolved]
  - Acute kidney injury [Not Recovered/Not Resolved]
  - End stage renal disease [Unknown]

NARRATIVE: CASE EVENT DATE: 20140120
